FAERS Safety Report 7629889-X (Version None)
Quarter: 2011Q3

REPORT INFORMATION
  Report Type: 
  Country: None (occurrence: None)
  Receive Date: 20110722
  Receipt Date: 20110712
  Transmission Date: 20111222
  Serious: Yes (Other)
  Sender: FDA-Public Use
  Company Number: IT-JNJFOC-20110704721

PATIENT
  Age: 45 Year
  Sex: Female

DRUGS (3)
  1. INFLIXIMAB, RECOMBINANT [Suspect]
     Indication: PSORIASIS
     Dosage: FOR 45 MONTHS
     Route: 042
     Dates: start: 20060501
  2. IMIQUIMOD [Suspect]
     Indication: BASAL CELL CARCINOMA
     Dosage: 5% CREAM 5X/WEEK FOR 6 WEEKS
     Route: 061
  3. ORAL CONTRACEPTIVES [Concomitant]

REACTIONS (3)
  - APPLICATION SITE REACTION [None]
  - BASAL CELL CARCINOMA [None]
  - APPLICATION SITE SCAR [None]
